FAERS Safety Report 4333206-0 (Version None)
Quarter: 2004Q2

REPORT INFORMATION
  Report Type: 
  Country: None (occurrence: None)
  Receive Date: 20040405
  Receipt Date: 20040405
  Transmission Date: 20050107
  Serious: Yes (Disabling)
  Sender: FDA-Public Use
  Company Number: None

PATIENT
  Age: 50 Year
  Sex: Female
  Weight: 86.1834 kg

DRUGS (1)
  1. CELEBREX [Suspect]
     Indication: PAIN MANAGEMENT
     Dosage: 1 TABLET DAILY ORAL
     Route: 048
     Dates: start: 20040323, end: 20040401

REACTIONS (3)
  - IMPAIRED WORK ABILITY [None]
  - RASH ERYTHEMATOUS [None]
  - RASH PRURITIC [None]
